FAERS Safety Report 20491234 (Version 1)
Quarter: 2022Q1

REPORT INFORMATION
  Report Type: Spontaneous
  Country: US (occurrence: US)
  Receive Date: 20220218
  Receipt Date: 20220218
  Transmission Date: 20220423
  Serious: No
  Sender: FDA-Public Use
  Company Number: US-MIRM-000241

PATIENT
  Sex: Male
  Weight: 9.979 kg

DRUGS (3)
  1. LIVMARLI [Suspect]
     Active Substance: MARALIXIBAT CHLORIDE
     Indication: Alagille syndrome
     Route: 048
  2. 3118011 (GLOBALC3Sep19): Naltrexone [Concomitant]
     Indication: Product used for unknown indication
  3. 2930039 (GLOBALC3Sep19): Hydroxyzine [Concomitant]
     Indication: Product used for unknown indication
     Route: 048

REACTIONS (5)
  - Pruritus [Unknown]
  - Pruritus [Unknown]
  - Pruritus [Unknown]
  - Pruritus [Unknown]
  - Pruritus [Unknown]
